FAERS Safety Report 14527528 (Version 6)
Quarter: 2018Q2

REPORT INFORMATION
  Report Type: Spontaneous
  Country: CZ (occurrence: CZ)
  Receive Date: 20180213
  Receipt Date: 20180419
  Transmission Date: 20180711
  Serious: Yes (Other)
  Sender: FDA-Public Use
  Company Number: CZ-BAUSCH-BL-2018-004205

PATIENT
  Age: 63 Year
  Sex: Female

DRUGS (19)
  1. FLUOROURACIL. [Suspect]
     Active Substance: FLUOROURACIL
     Indication: COLORECTAL CANCER
     Dosage: EVERY CYCLE
     Route: 065
     Dates: start: 201211, end: 201211
  2. FLUOROURACIL. [Suspect]
     Active Substance: FLUOROURACIL
     Indication: CHEMOTHERAPY
     Dosage: EVERY CYCLE
     Route: 065
     Dates: start: 201304, end: 201304
  3. OXALIPLATIN. [Suspect]
     Active Substance: OXALIPLATIN
     Indication: COLORECTAL CANCER
     Dosage: EVERY CYCLE
     Route: 065
     Dates: start: 201211, end: 201211
  4. BEVACIZUMAB. [Suspect]
     Active Substance: BEVACIZUMAB
     Indication: CHEMOTHERAPY
  5. AFLIBERCEPT [Suspect]
     Active Substance: AFLIBERCEPT
     Indication: PRODUCT USED FOR UNKNOWN INDICATION
     Route: 065
     Dates: start: 201409
  6. FLUOROURACIL. [Suspect]
     Active Substance: FLUOROURACIL
     Route: 065
     Dates: start: 201406, end: 201406
  7. FLUOROURACIL. [Suspect]
     Active Substance: FLUOROURACIL
     Route: 065
     Dates: start: 201409, end: 201409
  8. FOLINIC ACID [Suspect]
     Active Substance: LEUCOVORIN
     Indication: COLORECTAL CANCER
     Dosage: EVERY CYCLE
     Route: 065
     Dates: start: 201211, end: 201211
  9. FOLINIC ACID [Suspect]
     Active Substance: LEUCOVORIN
     Dosage: EVERY CYCLE
     Route: 065
     Dates: start: 201406, end: 201406
  10. CALCIUM FOLINATE [Suspect]
     Active Substance: LEUCOVORIN CALCIUM
     Indication: COLORECTAL CANCER
     Route: 065
     Dates: start: 201406, end: 201406
  11. OXALIPLATIN. [Suspect]
     Active Substance: OXALIPLATIN
     Indication: CHEMOTHERAPY
     Dosage: EVERY CYCLE
     Route: 065
     Dates: start: 201304, end: 201304
  12. FOLINIC ACID [Suspect]
     Active Substance: LEUCOVORIN
     Dosage: EVERY CYCLE
     Route: 065
     Dates: start: 201304, end: 201304
  13. CALCIUM FOLINATE [Suspect]
     Active Substance: LEUCOVORIN CALCIUM
     Indication: CHEMOTHERAPY
  14. FOLINIC ACID [Suspect]
     Active Substance: LEUCOVORIN
     Dosage: EVERY CYCLE
     Route: 065
     Dates: start: 201409, end: 201409
  15. IRINOTECAN HYDROCHLORIDE. [Suspect]
     Active Substance: IRINOTECAN HYDROCHLORIDE
     Indication: COLORECTAL CANCER
     Dosage: EVERY CYCLE
     Route: 065
     Dates: start: 201409, end: 201409
  16. OXALIPLATIN. [Suspect]
     Active Substance: OXALIPLATIN
     Dosage: EVERY CYCLE
     Route: 065
     Dates: start: 201406, end: 201406
  17. FOLINIC ACID [Suspect]
     Active Substance: LEUCOVORIN
     Dosage: EVERY CYCLE
     Route: 065
     Dates: start: 201601, end: 201601
  18. FLUOROURACIL. [Suspect]
     Active Substance: FLUOROURACIL
     Route: 065
     Dates: start: 201601, end: 201601
  19. BEVACIZUMAB. [Suspect]
     Active Substance: BEVACIZUMAB
     Indication: COLORECTAL CANCER
     Dosage: EVERY CYCLE
     Route: 065
     Dates: start: 201406, end: 201406

REACTIONS (4)
  - Fatigue [Unknown]
  - Off label use [Unknown]
  - Hypertension [Unknown]
  - Neoplasm progression [Unknown]

NARRATIVE: CASE EVENT DATE: 201406
